FAERS Safety Report 17734179 (Version 1)
Quarter: 2020Q2

REPORT INFORMATION
  Report Type: Report from Study
  Country: CN (occurrence: CN)
  Receive Date: 20200501
  Receipt Date: 20200501
  Transmission Date: 20200714
  Serious: Yes (Hospitalization)
  Sender: FDA-Public Use
  Company Number: CN-SA-2019SA195808

PATIENT
  Age: 68 Year
  Sex: Female
  Weight: 63 kg

DRUGS (20)
  1. LENALIDOMIDE [Suspect]
     Active Substance: LENALIDOMIDE
     Indication: PLASMA CELL MYELOMA
     Dosage: 25 MG, QD
     Route: 048
     Dates: start: 20190708, end: 20190714
  2. MU DAN KE LI [Concomitant]
     Dosage: UNK UNK, UNK
     Route: 048
     Dates: start: 20190701, end: 20190702
  3. NEUROTROPIN [RABBIT VACCINIA EXTRACT] [Concomitant]
     Active Substance: ORYCTOLAGUS CUNICULUS SKIN
     Indication: PROPHYLAXIS
     Dosage: UNK UNK, UNK
     Route: 048
     Dates: start: 20190701, end: 20190702
  4. COENZYME COMPLEX [Concomitant]
     Active Substance: UNSPECIFIED INGREDIENT
     Dosage: UNK UNK, UNK
     Route: 042
     Dates: start: 20190701, end: 20190702
  5. ISATUXIMAB [Suspect]
     Active Substance: ISATUXIMAB
     Indication: PLASMA CELL MYELOMA
     Dosage: 10 MG/KG, QW
     Route: 042
     Dates: start: 20190701, end: 20190701
  6. PANTOPRAZOLE SODIUM. [Concomitant]
     Active Substance: PANTOPRAZOLE SODIUM
     Indication: PROPHYLAXIS
     Dosage: UNK UNK, UNK
     Route: 042
     Dates: start: 20190701, end: 20190702
  7. ASPIRIN [ACETYLSALICYLIC ACID] [Concomitant]
     Active Substance: ASPIRIN
     Indication: PROPHYLAXIS
     Dosage: UNK UNK, UNK
     Route: 048
     Dates: start: 20190211, end: 20190925
  8. DEXAMETHASONE. [Suspect]
     Active Substance: DEXAMETHASONE
     Indication: PLASMA CELL MYELOMA
     Dosage: 20 MG, QD
     Route: 042
     Dates: start: 20190712, end: 20190712
  9. CALCIUM CARBONATE WITH D3 [Concomitant]
     Active Substance: CALCIUM CARBONATE\CHOLECALCIFEROL
     Indication: PROPHYLAXIS
     Dosage: UNK UNK, UNK
     Route: 048
     Dates: start: 20190701, end: 20190702
  10. ACICLOVIR [Concomitant]
     Active Substance: ACYCLOVIR
     Indication: PROPHYLAXIS
     Dosage: UNK UNK, UNK
     Route: 065
     Dates: start: 20190527, end: 20190715
  11. ISATUXIMAB [Suspect]
     Active Substance: ISATUXIMAB
     Dosage: 10 MG/KG, QW
     Route: 042
     Dates: start: 20190211, end: 20190211
  12. BORTEZOMIB. [Suspect]
     Active Substance: BORTEZOMIB
     Dosage: 1.3 MG/M2, OTHER
     Route: 058
     Dates: start: 20190211, end: 20190211
  13. LENALIDOMIDE [Suspect]
     Active Substance: LENALIDOMIDE
     Dosage: 25 MG, QD
     Route: 048
     Dates: start: 20190211, end: 20190217
  14. DEXAMETHASONE. [Suspect]
     Active Substance: DEXAMETHASONE
     Dosage: 20 MG, QD
     Route: 042
     Dates: start: 20190211, end: 20190211
  15. VALSARTAN. [Concomitant]
     Active Substance: VALSARTAN
     Dosage: UNK UNK, UNK
     Route: 048
     Dates: start: 20190305
  16. BORTEZOMIB. [Suspect]
     Active Substance: BORTEZOMIB
     Indication: PLASMA CELL MYELOMA
     Dosage: 1.3 MG/M2, OTHER
     Route: 058
     Dates: start: 20190708, end: 20190708
  17. CALCIUM CARBONATE WITH D3 [Concomitant]
     Active Substance: CALCIUM CARBONATE\CHOLECALCIFEROL
     Dosage: UNK UNK, UNK
     Route: 048
     Dates: start: 20190211
  18. SULFAMETHOXAZOLE AND TRIMETHOPRIM [Concomitant]
     Active Substance: SULFAMETHOXAZOLE\TRIMETHOPRIM
     Indication: PROPHYLAXIS
     Dosage: UNK UNK, UNK
     Route: 048
     Dates: start: 20190325, end: 20191026
  19. MU DAN KE LI [Concomitant]
     Indication: PROPHYLAXIS
     Dosage: UNK UNK, UNK
     Route: 048
     Dates: start: 20190307
  20. DIISOPROPYLAMINE DICHLOROACETATE [Concomitant]
     Indication: PROPHYLAXIS
     Dosage: UNK UNK, UNK
     Route: 042
     Dates: start: 20190701, end: 20190702

REACTIONS (1)
  - Pulmonary embolism [Recovered/Resolved]

NARRATIVE: CASE EVENT DATE: 20190716
